FAERS Safety Report 7278387-4 (Version None)
Quarter: 2011Q1

REPORT INFORMATION
  Report Type: 
  Country: None (occurrence: None)
  Receive Date: 20110207
  Receipt Date: 20110128
  Transmission Date: 20110831
  Serious: Yes (Hospitalization, Other)
  Sender: FDA-Public Use
  Company Number: US-MERCK-1007USA01973

PATIENT
  Age: 56 Year
  Sex: Female
  Weight: 55 kg

DRUGS (5)
  1. FOSAMAX PLUS D [Suspect]
     Indication: OSTEOPOROSIS
     Route: 048
     Dates: start: 20020101, end: 20090101
  2. FOSAMAX PLUS D [Suspect]
     Indication: OSTEOPOROSIS PROPHYLAXIS
     Route: 048
     Dates: start: 20020101, end: 20090101
  3. FOSAMAX PLUS D [Suspect]
     Indication: OSTEOPENIA
     Route: 048
     Dates: start: 20080901, end: 20090101
  4. FOSAMAX [Suspect]
     Indication: OSTEOPOROSIS
     Route: 048
     Dates: start: 20040617
  5. FOSAMAX [Suspect]
     Indication: OSTEOPENIA
     Route: 048
     Dates: start: 20040617

REACTIONS (21)
  - ELECTROCARDIOGRAM Q WAVE ABNORMAL [None]
  - FALL [None]
  - BLOOD THYROID STIMULATING HORMONE ABNORMAL [None]
  - ANAEMIA POSTOPERATIVE [None]
  - BLOOD CHOLESTEROL INCREASED [None]
  - FEMUR FRACTURE [None]
  - PHARYNGITIS [None]
  - INCISION SITE HAEMORRHAGE [None]
  - MYOCARDIAL INFARCTION [None]
  - NAUSEA [None]
  - TOOTH DISORDER [None]
  - TINNITUS [None]
  - LOW TURNOVER OSTEOPATHY [None]
  - SINOBRONCHITIS [None]
  - PERIODONTAL DISEASE [None]
  - HYPERLIPIDAEMIA [None]
  - FRACTURE DELAYED UNION [None]
  - FRACTURE [None]
  - RHINITIS ALLERGIC [None]
  - HYPERTENSION [None]
  - CONTUSION [None]
